FAERS Safety Report 6577294-X (Version None)
Quarter: 2010Q1

REPORT INFORMATION
  Report Type: 
  Country: None (occurrence: None)
  Receive Date: 20100210
  Receipt Date: 20100209
  Transmission Date: 20100710
  Serious: Yes (Hospitalization)
  Sender: FDA-Public Use
  Company Number: US-ABBOTT-10P-163-0620125-00

PATIENT
  Sex: Female
  Weight: 81.72 kg

DRUGS (8)
  1. HUMIRA [Suspect]
     Indication: COLITIS ULCERATIVE
     Route: 058
     Dates: start: 20091203, end: 20091231
  2. HUMIRA [Suspect]
     Route: 058
     Dates: start: 20091231
  3. IMURAN [Suspect]
     Indication: COLITIS ULCERATIVE
     Dates: start: 20090701, end: 20091101
  4. IMURAN [Suspect]
     Dosage: INCREASED
     Dates: start: 20091101, end: 20091201
  5. IMURAN [Suspect]
     Dosage: DECREASED
     Dates: start: 20091201
  6. BIRTH CONTROL [Concomitant]
     Indication: CONTRACEPTION
     Dates: end: 20100106
  7. PREDNISONE [Concomitant]
     Indication: COLITIS ULCERATIVE
     Dates: start: 20090101, end: 20091231
  8. PREDNISONE [Concomitant]
     Dates: start: 20091231, end: 20100121

REACTIONS (10)
  - ABDOMINAL PAIN [None]
  - ANTICOAGULATION DRUG LEVEL ABOVE THERAPEUTIC [None]
  - COLITIS ULCERATIVE [None]
  - DIARRHOEA [None]
  - HAEMOGLOBIN DECREASED [None]
  - HEPATIC ENZYME INCREASED [None]
  - OEDEMA PERIPHERAL [None]
  - PAIN IN EXTREMITY [None]
  - RED BLOOD CELL SEDIMENTATION RATE DECREASED [None]
  - THROMBOSIS [None]
